FAERS Safety Report 8241096-9 (Version None)
Quarter: 2012Q1

REPORT INFORMATION
  Report Type: 
  Country: None (occurrence: None)
  Receive Date: 20120328
  Receipt Date: 20120322
  Transmission Date: 20120608
  Serious: Yes (Hospitalization)
  Sender: FDA-Public Use
  Company Number: US-GLAXOSMITHKLINE-A0969889A

PATIENT
  Age: 65 Year
  Sex: Male

DRUGS (7)
  1. OMEPRAZOLE [Concomitant]
     Dosage: 40MG PER DAY
     Route: 048
     Dates: start: 20110915
  2. VOTRIENT [Suspect]
     Indication: GASTROINTESTINAL STROMAL TUMOUR
     Dosage: 800MG PER DAY
     Route: 048
     Dates: start: 20120130, end: 20120311
  3. ATENOLOL [Concomitant]
     Dosage: 25MG PER DAY
     Route: 048
     Dates: start: 20100630
  4. POTASSIUM PHOSPHATES [Concomitant]
     Dosage: 750MG TWICE PER DAY
     Route: 048
     Dates: start: 20110406
  5. IMODIUM [Concomitant]
     Dosage: 4MG AS REQUIRED
     Route: 048
     Dates: start: 20100825
  6. AMLODIPINE [Concomitant]
     Dosage: 10MG PER DAY
     Route: 048
     Dates: start: 20100517
  7. NAPROSYN [Concomitant]
     Dosage: 375MG AS REQUIRED
     Route: 048
     Dates: start: 20100308

REACTIONS (4)
  - DIARRHOEA [None]
  - NAUSEA [None]
  - FATIGUE [None]
  - INTESTINAL PERFORATION [None]
